FAERS Safety Report 16463593 (Version 1)
Quarter: 2019Q2

REPORT INFORMATION
  Report Type: Spontaneous
  Country: KR (occurrence: KR)
  Receive Date: 20190621
  Receipt Date: 20190621
  Transmission Date: 20190711
  Serious: Yes (Hospitalization, Other)
  Sender: FDA-Public Use
  Company Number: KR-009507513-1901KOR007837

PATIENT
  Sex: Female

DRUGS (9)
  1. KEYTRUDA [Suspect]
     Active Substance: PEMBROLIZUMAB
     Dosage: (QUANTITY:2, DAYS:1)
     Dates: start: 20190319, end: 20190319
  2. KEYTRUDA [Suspect]
     Active Substance: PEMBROLIZUMAB
     Dosage: (QUANTITY:2, DAYS:1)
     Dates: start: 20190110, end: 20190110
  3. KEYTRUDA [Suspect]
     Active Substance: PEMBROLIZUMAB
     Dosage: (QUANTITY:2, DAYS:1)
     Dates: start: 20190131, end: 20190131
  4. KEYTRUDA [Suspect]
     Active Substance: PEMBROLIZUMAB
     Dosage: (QUANTITY:2, DAYS:1)
     Dates: start: 20190223, end: 20190223
  5. KEYTRUDA [Suspect]
     Active Substance: PEMBROLIZUMAB
     Indication: B-CELL LYMPHOMA STAGE I
     Dosage: UNK
     Dates: start: 20181116
  6. KEYTRUDA [Suspect]
     Active Substance: PEMBROLIZUMAB
     Indication: CERVIX CARCINOMA RECURRENT
     Dosage: (QUANTITY:2, DAYS:1)
     Dates: start: 20181026, end: 20181026
  7. KEYTRUDA [Suspect]
     Active Substance: PEMBROLIZUMAB
     Indication: B-CELL LYMPHOMA STAGE I
     Dosage: (QUANTITY:2, DAYS:1)
     Dates: start: 20181208, end: 20181208
  8. KEYTRUDA [Suspect]
     Active Substance: PEMBROLIZUMAB
     Dosage: (QUANTITY:2, DAYS:1)
     Dates: start: 20190414, end: 20190414
  9. KEYTRUDA [Suspect]
     Active Substance: PEMBROLIZUMAB
     Dosage: (QUANTITY:2, DAYS:1)
     Dates: start: 20190605, end: 20190605

REACTIONS (11)
  - Adverse event [Unknown]
  - Adverse event [Unknown]
  - Packed red blood cell transfusion [Unknown]
  - Adverse event [Unknown]
  - Packed red blood cell transfusion [Unknown]
  - Adverse event [Unknown]
  - Inappropriate schedule of product administration [Unknown]
  - Adverse event [Unknown]
  - Adverse event [Unknown]
  - Transfusion [Unknown]
  - Product use in unapproved indication [Unknown]

NARRATIVE: CASE EVENT DATE: 201810
